FAERS Safety Report 7413184 (Version 4)
Quarter: 2022Q1

REPORT INFORMATION
  Report Type: Report from Study
  Country: US (occurrence: US)
  Receive Date: 20100608
  Receipt Date: 20220118
  Transmission Date: 20220423
  Serious: Yes (Hospitalization, Other)
  Sender: FDA-Public Use
  Company Number: US-PFIZER INC-2010066460

PATIENT
  Age: 72 Year
  Sex: Female
  Weight: 112.7 kg

DRUGS (2)
  1. SUNITINIB MALATE [Suspect]
     Active Substance: SUNITINIB MALATE
     Indication: Adenocarcinoma
     Dosage: 50 MG, 1X/DAY, CYCLE 1 ON DAYS 1-28
     Route: 048
     Dates: start: 20100503, end: 20100524
  2. PLAQUENIL [Suspect]
     Active Substance: HYDROXYCHLOROQUINE SULFATE
     Indication: Adenocarcinoma
     Dosage: 200 MG, 1X/DAY, ON DAYS 4-42
     Route: 048
     Dates: start: 20100503, end: 20100524

REACTIONS (5)
  - Impaired gastric emptying [Not Recovered/Not Resolved]
  - Dehydration [Not Recovered/Not Resolved]
  - Fatigue [Not Recovered/Not Resolved]
  - Oral dysaesthesia [Not Recovered/Not Resolved]
  - Hypocalcaemia [Recovered/Resolved]

NARRATIVE: CASE EVENT DATE: 20100517
